FAERS Safety Report 7657579-6 (Version None)
Quarter: 2011Q3

REPORT INFORMATION
  Report Type: 
  Country: None (occurrence: None)
  Receive Date: 20110804
  Receipt Date: 20110727
  Transmission Date: 20111222
  Serious: Yes (Life-Threatening, Hospitalization, Other)
  Sender: FDA-Public Use
  Company Number: DE-AMGEN-DEUSP2011038735

PATIENT
  Age: 51 Year
  Sex: Female
  Weight: 70 kg

DRUGS (3)
  1. PREDNISOLONE [Suspect]
     Indication: RHEUMATOID ARTHRITIS
     Dosage: 5 MG, PER DAY
     Route: 048
     Dates: start: 20030101
  2. ARAVA [Suspect]
     Indication: RHEUMATOID ARTHRITIS
     Dosage: 20 MG, PER DAY
     Route: 048
     Dates: start: 20100601, end: 20101001
  3. ENBREL [Suspect]
     Indication: RHEUMATOID ARTHRITIS
     Dosage: 50 MG, WEEKLY
     Route: 058
     Dates: start: 20100801, end: 20101001

REACTIONS (6)
  - RESPIRATORY FAILURE [None]
  - PLEURAL EFFUSION [None]
  - ATRIAL FIBRILLATION [None]
  - SEPTIC ARTHRITIS STAPHYLOCOCCAL [None]
  - PNEUMONIA CYTOMEGALOVIRAL [None]
  - CHOLESTASIS [None]
